FAERS Safety Report 10229718 (Version 1)
Quarter: 2014Q2

REPORT INFORMATION
  Report Type: Spontaneous
  Country: JP (occurrence: JP)
  Receive Date: 20140611
  Receipt Date: 20140611
  Transmission Date: 20141212
  Serious: Yes (Other)
  Sender: FDA-Public Use
  Company Number: PHHY2014JP069771

PATIENT
  Sex: Female

DRUGS (8)
  1. NEORAL [Suspect]
     Indication: DERMATOMYOSITIS
     Dosage: 150 MG, DAILY IN TWO DIVIDED DOSES
     Route: 048
  2. NEORAL [Suspect]
     Indication: INTERSTITIAL LUNG DISEASE
     Dosage: 75 MG, DAILY
     Route: 048
  3. NEORAL [Suspect]
     Indication: OFF LABEL USE
  4. PREDONINE [Concomitant]
     Dosage: 10 MG, ONCE DAILY AFTER BREAKFAST
     Route: 048
  5. TAKEPRON [Concomitant]
     Dosage: UNK UKN, UNK
  6. BAKTAR [Concomitant]
     Dosage: UNK UKN, UNK
  7. BONALON [Concomitant]
     Dosage: 35 MG, PER WEEK
  8. CORTICOSTEROIDS [Concomitant]
     Dosage: UNK UKN, UNK

REACTIONS (11)
  - Respiratory distress [Unknown]
  - Hypoacusis [Unknown]
  - Nerve compression [Unknown]
  - Pain in extremity [Unknown]
  - Hypoaesthesia [Unknown]
  - Muscle spasms [Unknown]
  - Limb discomfort [Unknown]
  - Feeling abnormal [Unknown]
  - Ocular discomfort [Unknown]
  - Decreased appetite [Unknown]
  - Immunosuppressant drug level increased [Unknown]
